FAERS Safety Report 4515166-2 (Version None)
Quarter: 2004Q4

REPORT INFORMATION
  Report Type: 
  Country: None (occurrence: None)
  Receive Date: 20041130
  Receipt Date: 20041130
  Transmission Date: 20050328
  Serious: No
  Sender: FDA-Public Use
  Company Number: None

PATIENT

DRUGS (1)
  1. PHENYTOIN [Suspect]
     Indication: AUTISM
     Dosage: 100 MG 1 IN AM 2 HS

REACTIONS (1)
  - PHARMACEUTICAL PRODUCT COMPLAINT [None]
